FAERS Safety Report 8559143-3 (Version None)
Quarter: 2012Q3

REPORT INFORMATION
  Report Type: 
  Country: None (occurrence: None)
  Receive Date: 20120802
  Receipt Date: 20120612
  Transmission Date: 20120928
  Serious: Yes (Life-Threatening, Hospitalization, Other)
  Sender: FDA-Public Use
  Company Number: FR-009507513-2010SP039100

PATIENT

DRUGS (18)
  1. DIPRIVAN [Suspect]
     Dosage: 100 MG, ONCE
     Route: 042
     Dates: start: 20100617, end: 20100617
  2. RIVOTRIL [Concomitant]
     Indication: PRODUCT USED FOR UNKNOWN INDICATION
  3. [COMPOSITION UNSPECIFIED] [Concomitant]
     Indication: PRODUCT USED FOR UNKNOWN INDICATION
     Dosage: REPORTED AS INNOVAIR (BECLOMETASONE, FORMOTEROL)
  4. ALUMINUM HYDROXIDE (+) MAGNESIUM CARBONATE [Concomitant]
     Indication: PRODUCT USED FOR UNKNOWN INDICATION
  5. ACETAMINOPHEN [Concomitant]
     Indication: PRODUCT USED FOR UNKNOWN INDICATION
  6. DIPRIVAN [Suspect]
     Indication: GENERAL ANAESTHESIA
     Dosage: 200 MG, ONCE
     Route: 042
     Dates: start: 20100617, end: 20100617
  7. ATARAX [Suspect]
     Indication: ANAESTHETIC PREMEDICATION
     Dosage: 50 MG, ONCE
     Route: 048
     Dates: start: 20100617, end: 20100617
  8. OXYCONTIN [Concomitant]
     Indication: PRODUCT USED FOR UNKNOWN INDICATION
  9. NEXIUM [Concomitant]
     Indication: PRODUCT USED FOR UNKNOWN INDICATION
  10. DIPRIVAN [Suspect]
     Dosage: 100 MG, ONCE
     Route: 042
     Dates: start: 20100617, end: 20100617
  11. SUFENTANIL CITRATE [Suspect]
     Dosage: 10 ?G, ONCE
     Route: 042
     Dates: start: 20100617, end: 20100617
  12. LYRICA [Suspect]
     Indication: ANAESTHETIC PREMEDICATION
     Dosage: 150 MG, ONCE
     Route: 048
     Dates: start: 20100617, end: 20100617
  13. OLMESARTAN MEDOXOMIL [Concomitant]
     Indication: PRODUCT USED FOR UNKNOWN INDICATION
  14. NAROPIN [Suspect]
     Indication: NEUROMUSCULAR BLOCKADE
     Dosage: 20 MG, ONCE
     Route: 042
     Dates: start: 20100617, end: 20100617
  15. DESLORATADINE [Concomitant]
     Indication: PRODUCT USED FOR UNKNOWN INDICATION
  16. CYMBALTA [Concomitant]
     Indication: PRODUCT USED FOR UNKNOWN INDICATION
  17. ROCURONIUM BROMIDE [Suspect]
     Indication: GENERAL ANAESTHESIA
     Dosage: 50 MG, ONCE
     Route: 042
     Dates: start: 20100617, end: 20100617
  18. SUFENTANIL CITRATE [Suspect]
     Indication: GAIT DISTURBANCE
     Dosage: 40 ?G, ONCE
     Route: 042
     Dates: start: 20100617, end: 20100617

REACTIONS (11)
  - MYOCARDIAL INFARCTION [None]
  - CYANOSIS [None]
  - HYPOVOLAEMIA [None]
  - ANAPHYLACTIC SHOCK [None]
  - HYPERCAPNIA [None]
  - HYPERHIDROSIS [None]
  - BRONCHOSPASM [None]
  - BRADYCARDIA [None]
  - HYPOTENSION [None]
  - RESPIRATORY ACIDOSIS [None]
  - CARDIO-RESPIRATORY ARREST [None]
